FAERS Safety Report 23692542 (Version 1)
Quarter: 2024Q1

REPORT INFORMATION
  Report Type: Spontaneous
  Country: US (occurrence: None)
  Receive Date: 20240330
  Receipt Date: 20240330
  Transmission Date: 20240410
  Serious: Yes (Disabling)
  Sender: FDA-Public Use
  Company Number: None

PATIENT
  Age: 50 Year
  Sex: Female
  Weight: 76.5 kg

DRUGS (5)
  1. DUPIXENT [Suspect]
     Active Substance: DUPILUMAB
     Indication: Eosinophilic oesophagitis
     Dosage: 1 X WEEKLY SUBCUTANEOUS?
     Route: 058
     Dates: start: 20230115, end: 20240221
  2. DUPIXENT [Suspect]
     Active Substance: DUPILUMAB
     Indication: Eczema
  3. DUPIXENT [Suspect]
     Active Substance: DUPILUMAB
     Indication: Dermatitis atopic
  4. Valtrex Hormone w/ Vitamin D [Concomitant]
  5. LYSINE [Concomitant]
     Active Substance: LYSINE

REACTIONS (5)
  - Headache [None]
  - Neck pain [None]
  - Back pain [None]
  - Brain fog [None]
  - Neuralgia [None]

NARRATIVE: CASE EVENT DATE: 20240130
